FAERS Safety Report 9387339 (Version 2)
Quarter: 2013Q3

REPORT INFORMATION
  Report Type: Report from Study
  Country: DE (occurrence: DE)
  Receive Date: 20130708
  Receipt Date: 20130723
  Transmission Date: 20140515
  Serious: Yes (Hospitalization)
  Sender: FDA-Public Use
  Company Number: DE-AMGEN-DEUCT2013046320

PATIENT
  Sex: Male

DRUGS (5)
  1. PANITUMUMAB [Suspect]
     Indication: CHOLANGIOCARCINOMA
     Dosage: 9 MG/KG, UNK
     Dates: start: 20130416
  2. GEMCITABIN [Concomitant]
     Indication: CHOLANGIOCARCINOMA
     Dosage: 1000 MG/M2, UNK
     Dates: start: 20130416
  3. CISPLATIN [Concomitant]
     Indication: CHOLANGIOCARCINOMA
     Dosage: 25 MG/M2, UNK
     Dates: start: 20130416
  4. DOXYCYCLINE [Concomitant]
     Dosage: 100 MG, QD
     Route: 048
     Dates: start: 20130415
  5. PANTOZOL [Concomitant]
     Dosage: 40 MG, UNK
     Route: 048
     Dates: start: 20130415

REACTIONS (1)
  - Peripheral ischaemia [Recovered/Resolved]
